FAERS Safety Report 9241627 (Version 1)
Quarter: 2013Q2

REPORT INFORMATION
  Report Type: Spontaneous
  Country: BR (occurrence: BR)
  Receive Date: 20130419
  Receipt Date: 20130419
  Transmission Date: 20140414
  Serious: Yes (Other)
  Sender: FDA-Public Use
  Company Number: BR-SANOFI-AVENTIS-2013SA038160

PATIENT
  Age: 77 Year
  Sex: Male
  Weight: 86 kg

DRUGS (10)
  1. LANTUS SOLOSTAR [Suspect]
     Indication: TYPE 2 DIABETES MELLITUS
     Route: 058
     Dates: start: 2011
  2. SOLOSTAR [Suspect]
     Indication: DEVICE THERAPY
     Dates: start: 2011
  3. LOSARTAN [Concomitant]
     Indication: HYPERTENSION
  4. SPIRONOLACTONE [Concomitant]
     Indication: HYPERTENSION
  5. HYDROCHLOROTHIAZIDE [Concomitant]
     Indication: HYPERTENSION
  6. ATENOLOL [Concomitant]
     Indication: HYPERTENSION
  7. AMLODIPINE [Concomitant]
     Indication: HYPERTENSION
  8. SIMVASTATIN [Concomitant]
  9. ACICLOVIR [Concomitant]
     Indication: HERPES OPHTHALMIC
  10. HUMALOG [Concomitant]
     Indication: TYPE 2 DIABETES MELLITUS

REACTIONS (6)
  - Hyperglycaemia [Not Recovered/Not Resolved]
  - Abdominal pain upper [Not Recovered/Not Resolved]
  - Hyperhidrosis [Not Recovered/Not Resolved]
  - Muscular weakness [Not Recovered/Not Resolved]
  - Disorientation [Not Recovered/Not Resolved]
  - Loss of consciousness [Not Recovered/Not Resolved]
